FAERS Safety Report 12453358 (Version 2)
Quarter: 2016Q2

REPORT INFORMATION
  Report Type: Spontaneous
  Country: DE (occurrence: DE)
  Receive Date: 20160609
  Receipt Date: 20160610
  Transmission Date: 20160815
  Serious: Yes (Hospitalization)
  Sender: FDA-Public Use
  Company Number: PHHY2016DE052166

PATIENT
  Age: 57 Year
  Sex: Male
  Weight: 118 kg

DRUGS (4)
  1. ACETYLSALICYLIC ACID [Concomitant]
     Active Substance: ASPIRIN
     Indication: PRODUCT USED FOR UNKNOWN INDICATION
     Dosage: 100 MG, QD
     Route: 048
     Dates: start: 20131013
  2. SIMVASTATIN. [Concomitant]
     Active Substance: SIMVASTATIN
     Indication: HYPERLIPIDAEMIA
     Dosage: 20 MG, QD
     Route: 048
  3. IBUPROFEN. [Suspect]
     Active Substance: IBUPROFEN
     Indication: PRODUCT USED FOR UNKNOWN INDICATION
     Dosage: UNK
     Route: 065
  4. GILENYA [Suspect]
     Active Substance: FINGOLIMOD HYDROCHLORIDE
     Indication: RELAPSING-REMITTING MULTIPLE SCLEROSIS
     Dosage: 0.5 MG, QD
     Route: 048
     Dates: start: 20130516, end: 20160229

REACTIONS (18)
  - Pruritus [Recovered/Resolved]
  - Chromaturia [Recovered/Resolved]
  - Pancreatitis acute [Unknown]
  - Vomiting [Recovered/Resolved]
  - Nausea [Unknown]
  - Faeces discoloured [Recovered/Resolved]
  - Abdominal pain upper [Unknown]
  - Autoantibody positive [Unknown]
  - Hepatic enzyme increased [Recovered/Resolved]
  - Bile duct stone [Recovered/Resolved]
  - Decreased appetite [Recovered/Resolved]
  - Cytomegalovirus test positive [Unknown]
  - Epstein-Barr virus antibody positive [Unknown]
  - Cholelithiasis obstructive [Recovered/Resolved]
  - Pancreatitis [Recovered/Resolved]
  - Jaundice [Recovered/Resolved]
  - Abdominal pain lower [Unknown]
  - Haemoglobin decreased [Unknown]

NARRATIVE: CASE EVENT DATE: 20160219
